FAERS Safety Report 13399592 (Version 1)
Quarter: 2017Q2

REPORT INFORMATION
  Report Type: Spontaneous
  Country: US (occurrence: US)
  Receive Date: 20170403
  Receipt Date: 20170403
  Transmission Date: 20170830
  Serious: Yes (Other)
  Sender: FDA-Public Use
  Company Number: None

PATIENT
  Age: 58 Year
  Sex: Male

DRUGS (1)
  1. GLATOPA [Suspect]
     Active Substance: GLATIRAMER ACETATE
     Indication: MULTIPLE SCLEROSIS
     Route: 062
     Dates: start: 20160914, end: 20170403

REACTIONS (5)
  - Injection site pruritus [None]
  - Injection site vesicles [None]
  - Injection site pain [None]
  - Injection site erythema [None]
  - Abdominal wall disorder [None]

NARRATIVE: CASE EVENT DATE: 20170309
